FAERS Safety Report 4444133-2 (Version None)
Quarter: 2004Q3

REPORT INFORMATION
  Report Type: 
  Country: None (occurrence: None)
  Receive Date: 20040812
  Receipt Date: 20040329
  Transmission Date: 20050211
  Serious: Yes (Hospitalization)
  Sender: FDA-Public Use
  Company Number: US_990115356

PATIENT
  Age: 40 Year
  Sex: Female
  Weight: 48 kg

DRUGS (5)
  1. HUMULIN L [Suspect]
     Indication: DIABETES MELLITUS
  2. HUMULIN R [Suspect]
     Indication: DIABETES MELLITUS
  3. HUMULIN N [Suspect]
     Indication: DIABETES MELLITUS
  4. ILETIN I [Suspect]
  5. REGULAR ILETIN II (PORK) [Suspect]

REACTIONS (8)
  - ASTHENIA [None]
  - BLOOD GLUCOSE DECREASED [None]
  - IMPAIRED GASTRIC EMPTYING [None]
  - LACTOSE INTOLERANCE [None]
  - LETHARGY [None]
  - VISUAL ACUITY REDUCED [None]
  - VOMITING [None]
  - WEIGHT DECREASED [None]
